FAERS Safety Report 5678306-8 (Version None)
Quarter: 2008Q1

REPORT INFORMATION
  Report Type: 
  Country: None (occurrence: None)
  Receive Date: 20080320
  Receipt Date: 20080312
  Transmission Date: 20080703
  Serious: Yes (Other)
  Sender: FDA-Public Use
  Company Number: 2008006382

PATIENT

DRUGS (1)
  1. VISINE EYE DROPS [Suspect]
     Dosage: 2 DROPS TWICE DAILY, OPHTHALMIC
     Route: 047
     Dates: start: 20080310, end: 20080312

REACTIONS (2)
  - EXPIRED DRUG ADMINISTERED [None]
  - EYE BURNS [None]
